FAERS Safety Report 9502069 (Version 1)
Quarter: 2013Q3

REPORT INFORMATION
  Report Type: Report from Study
  Country: DE (occurrence: DE)
  Receive Date: 20130905
  Receipt Date: 20130905
  Transmission Date: 20140515
  Serious: Yes (Hospitalization)
  Sender: FDA-Public Use
  Company Number: DE-ABBOTT-13P-062-1141409-00

PATIENT
  Age: 40 Year
  Sex: Female
  Weight: 52 kg

DRUGS (2)
  1. HUMIRA [Suspect]
     Indication: CROHN^S DISEASE
     Route: 058
     Dates: start: 20130201, end: 201307
  2. HUMIRA [Suspect]
     Route: 058
     Dates: start: 201307

REACTIONS (11)
  - Gastritis [Recovered/Resolved]
  - Hiatus hernia [Recovered/Resolved]
  - Nausea [Recovered/Resolved]
  - Vomiting [Recovered/Resolved]
  - Crohn^s disease [Recovered/Resolved]
  - Anal fistula [Recovered/Resolved]
  - General physical health deterioration [Recovered/Resolved]
  - Malnutrition [Recovered/Resolved]
  - Tachycardia [Recovered/Resolved]
  - Iron deficiency anaemia [Unknown]
  - Gallbladder polyp [Recovering/Resolving]
